FAERS Safety Report 24408603 (Version 1)
Quarter: 2024Q4

REPORT INFORMATION
  Report Type: Spontaneous
  Country: US (occurrence: US)
  Receive Date: 20241007
  Receipt Date: 20241007
  Transmission Date: 20250114
  Serious: No
  Sender: RECKITT BENCKISER
  Company Number: US-INDIVIOR US-INDV-144511-2024

PATIENT
  Sex: Female
  Weight: 58.957 kg

DRUGS (3)
  1. SUBLOCADE [Suspect]
     Active Substance: BUPRENORPHINE
     Indication: Product used for unknown indication
     Dosage: 100 MILLIGRAM, QMO
     Route: 065
     Dates: start: 2023
  2. SUBLOCADE [Suspect]
     Active Substance: BUPRENORPHINE
     Dosage: 40 MILLIGRAM, QMO
     Route: 065
     Dates: start: 20240207
  3. SUBLOCADE [Suspect]
     Active Substance: BUPRENORPHINE
     Dosage: 25 MILLIGRAM, QMO
     Route: 065
     Dates: start: 20240305

REACTIONS (1)
  - Off label use [Recovered/Resolved]

NARRATIVE: CASE EVENT DATE: 20240207
